FAERS Safety Report 15466871 (Version 3)
Quarter: 2020Q3

REPORT INFORMATION
  Report Type: Report from Study
  Country: DE (occurrence: DE)
  Receive Date: 20181005
  Receipt Date: 20181018
  Transmission Date: 20201104
  Serious: Yes (Hospitalization, Other)
  Sender: FDA-Public Use
  Company Number: DE-ROCHE-2011530

PATIENT
  Age: 75 Year
  Sex: Male
  Weight: 67 kg

DRUGS (15)
  1. PERTUZUMAB. [Suspect]
     Active Substance: PERTUZUMAB
     Indication: OESOPHAGEAL ADENOCARCINOMA
  2. TRASTUZUMAB. [Suspect]
     Active Substance: TRASTUZUMAB
     Indication: OESOPHAGEAL ADENOCARCINOMA
     Route: 042
  3. FLUOROURACIL. [Suspect]
     Active Substance: FLUOROURACIL
     Indication: ADENOCARCINOMA GASTRIC
     Dosage: MOST RECENT DOSE ON 11/OCT/2017, 4628MG?MOST RECENT DOSE PRIOR TO FRAILTY ON 09/JAN/2018, 4628 MG
     Route: 042
  4. KABIVEN [Concomitant]
     Active Substance: AMINO ACIDS\ANHYDROUS DEXTROSE\CALCIUM CHLORIDE\MAGNESIUM SULFATE HEPTAHYDRATE\POTASSIUM CHLORIDE\SODIUM ACETATE\SODIUM GLYCEROPHOSPHATE ANHYDROUS\SOYBEAN OIL
     Route: 042
  5. METOCLOPRAMID [Concomitant]
     Active Substance: METOCLOPRAMIDE
     Route: 042
  6. PERTUZUMAB. [Suspect]
     Active Substance: PERTUZUMAB
     Indication: ADENOCARCINOMA GASTRIC
     Dosage: MOST RECENT DOSE ON 04/OCT/2017, 840MG?MOST RECENT DOSE ON 09/JAN/2018 PRIOR TO FRAILTY  840 MG?MOST
     Route: 042
     Dates: start: 20170912
  7. FOLINIC ACID [Suspect]
     Active Substance: LEUCOVORIN
     Indication: ADENOCARCINOMA GASTRIC
     Dosage: MOST RECENT DOSE ON 11/OCT/2017, 356MG (PRIOR TO FEVER)?MOST RECENT DOSE ON 09/JAN/2018 PRIOR TO FRA
     Route: 042
  8. DOCETAXEL. [Suspect]
     Active Substance: DOCETAXEL
     Indication: OESOPHAGEAL ADENOCARCINOMA
  9. OXALIPLATIN. [Suspect]
     Active Substance: OXALIPLATIN
     Indication: ADENOCARCINOMA GASTRIC
     Dosage: MOST RECENT DOSE ON 11/OCT/2017, 151.3 MG (PRIOR TO FEVER)?MOST RECENT DOSE PRIOR TO FRAILTY: 151.3
     Route: 042
  10. TRASTUZUMAB. [Suspect]
     Active Substance: TRASTUZUMAB
     Route: 042
     Dates: start: 20180109
  11. DOCETAXEL. [Suspect]
     Active Substance: DOCETAXEL
     Indication: ADENOCARCINOMA GASTRIC
     Dosage: MOST RECENT DOSE ON PRIOR TO FEVER 11/OCT/2017, 89MG?MOST RECENT DOSE PRIOR TO 09/JAN/2018 PRIOR TO
     Route: 042
  12. RIOPAN (GERMANY) [Concomitant]
  13. TRASTUZUMAB. [Suspect]
     Active Substance: TRASTUZUMAB
     Indication: ADENOCARCINOMA GASTRIC
     Dosage: MOST RECENT DOSE ON 04/OCT/2017, 420MG?MOST RECENT DOSE ON 09/JAN/2018 PRIOR TO FRAILTY, 402 MG?MOST
     Route: 042
     Dates: start: 20170912
  14. FOLINIC ACID [Suspect]
     Active Substance: LEUCOVORIN
     Indication: OESOPHAGEAL ADENOCARCINOMA
  15. OXALIPLATIN. [Suspect]
     Active Substance: OXALIPLATIN
     Indication: OESOPHAGEAL ADENOCARCINOMA

REACTIONS (3)
  - Pyrexia [Not Recovered/Not Resolved]
  - Duodenal ulcer [Recovered/Resolved]
  - Asthenia [Recovered/Resolved]

NARRATIVE: CASE EVENT DATE: 20171011
